FAERS Safety Report 23907532 (Version 2)
Quarter: 2024Q2

REPORT INFORMATION
  Report Type: Spontaneous
  Country: IT (occurrence: IT)
  Receive Date: 20240528
  Receipt Date: 20240606
  Transmission Date: 20240716
  Serious: Yes (Death, Other)
  Sender: FDA-Public Use
  Company Number: IT-SUN PHARMACEUTICAL INDUSTRIES LTD-2024RR-447848

PATIENT
  Sex: Male

DRUGS (5)
  1. ODOMZO [Suspect]
     Active Substance: SONIDEGIB
     Indication: Basal cell carcinoma
     Dosage: UNK
     Route: 065
     Dates: start: 20231209
  2. PROSCAR [Concomitant]
     Active Substance: FINASTERIDE
     Indication: Prostate induration
     Dosage: 5 MILLILITER, DAILY
     Route: 065
  3. Norvax [Concomitant]
     Indication: Blood pressure measurement
     Dosage: 10 MILLIGRAM, DAILY
     Route: 065
  4. Unipril [Concomitant]
     Indication: Blood pressure measurement
     Dosage: 15 MILLIGRAM, DAILY
     Route: 065
  5. METOCLOPRAMIDE HYDROCHLORIDE [Concomitant]
     Active Substance: METOCLOPRAMIDE HYDROCHLORIDE
     Indication: Nausea
     Dosage: UNK
     Route: 065

REACTIONS (2)
  - Gastrointestinal haemorrhage [Fatal]
  - Myocardial infarction [Fatal]
